FAERS Safety Report 4932038-X (Version None)
Quarter: 2006Q1

REPORT INFORMATION
  Report Type: 
  Country: None (occurrence: None)
  Receive Date: 20060303
  Receipt Date: 20060301
  Transmission Date: 20060701
  Serious: Yes (Hospitalization)
  Sender: FDA-Public Use
  Company Number: AU-AVENTIS-200611862GDDC

PATIENT

DRUGS (2)
  1. LANTUS [Suspect]
     Route: 058
  2. SHORT ACTING INSULIN [Concomitant]

REACTIONS (5)
  - DIABETIC KETOACIDOSIS [None]
  - DRUG DOSE OMISSION [None]
  - MALAISE [None]
  - NAUSEA [None]
  - ORAL INTAKE REDUCED [None]
